FAERS Safety Report 18765514 (Version 1)
Quarter: 2021Q1

REPORT INFORMATION
  Report Type: Spontaneous
  Country: NZ (occurrence: NZ)
  Receive Date: 20210121
  Receipt Date: 20210121
  Transmission Date: 20210419
  Serious: Yes (Other)
  Sender: FDA-Public Use
  Company Number: NZ-APOTEX-2021AP001361

PATIENT
  Age: 50 Year
  Sex: Female

DRUGS (1)
  1. ZOLEDRONIC ACID [Suspect]
     Active Substance: ZOLEDRONIC ACID
     Indication: BREAST CANCER METASTATIC
     Dosage: 4 MILLIGRAM
     Route: 042

REACTIONS (3)
  - Product prescribing error [Unknown]
  - Osteomalacia [Recovering/Resolving]
  - Condition aggravated [Recovering/Resolving]
